FAERS Safety Report 4899438-8 (Version None)
Quarter: 2006Q1

REPORT INFORMATION
  Report Type: 
  Country: None (occurrence: None)
  Receive Date: 20060118
  Receipt Date: 20050607
  Transmission Date: 20060701
  Serious: No
  Sender: FDA-Public Use
  Company Number: 2005001058

PATIENT
  Age: 61 Year
  Sex: Female

DRUGS (3)
  1. TARCEVA [Suspect]
     Indication: LUNG ADENOCARCINOMA
     Dosage: SEE IMAGE
     Route: 048
     Dates: start: 20041201, end: 20050301
  2. TARCEVA [Suspect]
     Indication: LUNG ADENOCARCINOMA
     Dosage: SEE IMAGE
     Route: 048
     Dates: start: 20050301, end: 20050426
  3. . [Concomitant]

REACTIONS (4)
  - NAIL DISORDER [None]
  - NAIL INFECTION [None]
  - ONYCHOMADESIS [None]
  - RASH [None]
